FAERS Safety Report 10017515 (Version 1)
Quarter: 2014Q1

REPORT INFORMATION
  Report Type: Spontaneous
  Country: US (occurrence: US)
  Receive Date: 20140318
  Receipt Date: 20140318
  Transmission Date: 20141002
  Serious: No
  Sender: FDA-Public Use
  Company Number: US-BAYER-2014-039167

PATIENT
  Age: 62 Year
  Sex: Female
  Weight: 63.04 kg

DRUGS (4)
  1. ALEVE CAPLET [Suspect]
     Indication: ANALGESIC THERAPY
     Route: 048
  2. ALEVE CAPLET [Suspect]
     Indication: ANALGESIC THERAPY
     Dosage: 3 DF, UNK
     Route: 048
     Dates: start: 20140311, end: 20140311
  3. ALEVE CAPLET [Suspect]
     Indication: ANALGESIC THERAPY
     Dosage: 2 DF, UNK
     Route: 048
     Dates: start: 20140312, end: 20140312
  4. SYNTHROID [Concomitant]
     Dosage: UNK

REACTIONS (1)
  - Drug ineffective [None]
